FAERS Safety Report 6300630-6 (Version None)
Quarter: 2009Q3

REPORT INFORMATION
  Report Type: 
  Country: None (occurrence: None)
  Receive Date: 20090806
  Receipt Date: 20081209
  Transmission Date: 20100115
  Serious: No
  Sender: FDA-Public Use
  Company Number: US-ABBOTT-08P-163-0492064-00

PATIENT
  Sex: Male
  Weight: 88.53 kg

DRUGS (9)
  1. DEPAKOTE ER [Suspect]
     Indication: CONVULSION
     Dates: start: 19920101
  2. LAMICTAL [Suspect]
     Indication: CONVULSION
     Dates: start: 20080701
  3. LIPITOR [Concomitant]
     Indication: BLOOD CHOLESTEROL INCREASED
  4. MOBIC [Concomitant]
     Indication: ARTHRITIS
  5. ZANTAC [Concomitant]
     Indication: GASTROOESOPHAGEAL REFLUX DISEASE
  6. OMEPRAZOLE [Concomitant]
     Indication: GASTRIC DISORDER
  7. DARVOCET [Concomitant]
     Indication: PAIN
     Dosage: TWICE A DAY AND PRN
  8. MULTI-VITAMIN [Concomitant]
     Indication: VITAMIN SUPPLEMENTATION
  9. PAXIL [Concomitant]
     Indication: DEPRESSION

REACTIONS (3)
  - DRUG LEVEL DECREASED [None]
  - TREMOR [None]
  - UNEVALUABLE EVENT [None]
